FAERS Safety Report 5898725-4 (Version None)
Quarter: 2008Q3

REPORT INFORMATION
  Report Type: 
  Country: None (occurrence: None)
  Receive Date: 20080925
  Receipt Date: 20080507
  Transmission Date: 20090109
  Serious: No
  Sender: FDA-Public Use
  Company Number: A0726805A

PATIENT
  Age: 49 Year
  Sex: Female

DRUGS (3)
  1. WELLBUTRIN XL [Suspect]
     Indication: DEPRESSION
     Dosage: 300MG PER DAY
     Route: 048
     Dates: start: 20080401
  2. LORAZEPAM [Suspect]
     Dosage: 1MG THREE TIMES PER DAY
     Route: 048
     Dates: start: 20071101
  3. REMERON [Concomitant]

REACTIONS (2)
  - AMNESIA [None]
  - METRORRHAGIA [None]
